FAERS Safety Report 14301770 (Version 1)
Quarter: 2017Q4

REPORT INFORMATION
  Report Type: Other
  Country: None (occurrence: US)
  Receive Date: 20171219
  Receipt Date: 20171219
  Transmission Date: 20180321
  Serious: Yes (Death, Hospitalization)
  Sender: FDA-Public Use
  Company Number: US-WELLSTAT THERAPEUTICS CORPORATION-2037393

PATIENT
  Age: 78 Year
  Sex: Male
  Weight: 68 kg

DRUGS (7)
  1. TIMOLOL. [Concomitant]
     Active Substance: TIMOLOL
  2. VISTOGARD [Suspect]
     Active Substance: URIDINE TRIACETATE
     Indication: CHEMOTHERAPY TOXICITY ATTENUATION
     Route: 050
  3. CAPECITABINE. [Concomitant]
     Active Substance: CAPECITABINE
     Route: 048
  4. CLOPIDOGREL [Concomitant]
     Active Substance: CLOPIDOGREL BISULFATE
  5. RADIOPHARMACEUTICALS [Concomitant]
  6. MEMANTINE. [Concomitant]
     Active Substance: MEMANTINE
  7. CLOTRIMAZOLE. [Concomitant]
     Active Substance: CLOTRIMAZOLE

REACTIONS (5)
  - Complication associated with device [None]
  - Bacteraemia [Fatal]
  - Sepsis [None]
  - Thrombocytopenia [None]
  - Neutropenia [None]
